FAERS Safety Report 17666529 (Version 3)
Quarter: 2022Q2

REPORT INFORMATION
  Report Type: Spontaneous
  Country: US (occurrence: US)
  Receive Date: 20200414
  Receipt Date: 20220412
  Transmission Date: 20220721
  Serious: No
  Sender: FDA-Public Use
  Company Number: 18270

PATIENT
  Sex: Female
  Weight: 78.005 kg

DRUGS (15)
  1. KORLYM [Suspect]
     Active Substance: MIFEPRISTONE
     Indication: Cushing^s syndrome
     Dosage: 300 MG, QD
     Route: 048
     Dates: start: 20190823, end: 20190903
  2. KORLYM [Suspect]
     Active Substance: MIFEPRISTONE
     Dosage: 600 MG, QD
     Route: 048
     Dates: start: 20190904, end: 2019
  3. KORLYM [Suspect]
     Active Substance: MIFEPRISTONE
     Dosage: 600 MG, QD
     Route: 048
     Dates: start: 2019
  4. KORLYM [Suspect]
     Active Substance: MIFEPRISTONE
     Dosage: 300 MG, QD
     Route: 048
     Dates: start: 20200117, end: 2020
  5. KORLYM [Suspect]
     Active Substance: MIFEPRISTONE
     Dosage: 600 MG, QD
     Route: 048
     Dates: start: 2020, end: 202008
  6. BACLOFEN [Concomitant]
     Active Substance: BACLOFEN
     Indication: Product used for unknown indication
     Dosage: UNK, PRN
  7. GABAPENTIN [Concomitant]
     Active Substance: GABAPENTIN
     Indication: Product used for unknown indication
     Dosage: UNK, PRN
  8. SOLIQUA 100/33 [Concomitant]
     Active Substance: INSULIN GLARGINE\LIXISENATIDE
     Indication: Product used for unknown indication
     Dosage: UNK
  9. CRESTOR [Concomitant]
     Active Substance: ROSUVASTATIN CALCIUM
     Indication: Product used for unknown indication
     Dosage: UNK
  10. ZOLOFT [Concomitant]
     Active Substance: SERTRALINE HYDROCHLORIDE
     Indication: Product used for unknown indication
     Dosage: UNK
  11. XANAX [Concomitant]
     Active Substance: ALPRAZOLAM
     Indication: Product used for unknown indication
     Dosage: UNK, PRN
  12. LOSARTAN [Concomitant]
     Active Substance: LOSARTAN
     Indication: Product used for unknown indication
     Dosage: UNK
  13. INVOKAMET [Concomitant]
     Active Substance: CANAGLIFLOZIN\METFORMIN HYDROCHLORIDE
     Indication: Product used for unknown indication
     Dosage: UNK
  14. IMITREX                            /01044801/ [Concomitant]
     Indication: Product used for unknown indication
     Dosage: UNK
  15. GLIPIZIDE [Concomitant]
     Active Substance: GLIPIZIDE
     Indication: Product used for unknown indication
     Dosage: UNK

REACTIONS (21)
  - Hypertension [Recovering/Resolving]
  - Adrenal mass [Recovering/Resolving]
  - Blood glucose increased [Unknown]
  - Micturition urgency [Unknown]
  - Pollakiuria [Unknown]
  - Pelvic pain [Unknown]
  - Hot flush [Not Recovered/Not Resolved]
  - Pyrexia [Recovering/Resolving]
  - Dysuria [Unknown]
  - Palpitations [Unknown]
  - Glycosylated haemoglobin increased [Unknown]
  - Fatigue [Recovering/Resolving]
  - Headache [Unknown]
  - Muscle spasms [Recovered/Resolved]
  - Nausea [Unknown]
  - Pain [Recovering/Resolving]
  - Swelling [Recovered/Resolved]
  - Pain in extremity [Unknown]
  - Somnolence [Unknown]
  - Flank pain [Recovering/Resolving]
  - Cortisol increased [Unknown]

NARRATIVE: CASE EVENT DATE: 20190101
